FAERS Safety Report 9188820 (Version 2)
Quarter: 2015Q1

REPORT INFORMATION
  Report Type: Spontaneous
  Country: BE (occurrence: BE)
  Receive Date: 20130326
  Receipt Date: 20150305
  Transmission Date: 20150721
  Serious: Yes (Death, Hospitalization)
  Sender: FDA-Public Use
  Company Number: BE-MYLANLABS-2013S1005729

PATIENT

DRUGS (1)
  1. VENLAFAXINE [Suspect]
     Active Substance: VENLAFAXINE HYDROCHLORIDE
     Indication: OVERDOSE
     Dosage: 4.2 G,ONCE
     Route: 048

REACTIONS (10)
  - Hypoxia [Fatal]
  - Overdose [Fatal]
  - Pneumococcal sepsis [Unknown]
  - Acute respiratory distress syndrome [Fatal]
  - Cardiac failure acute [Fatal]
  - Rhabdomyolysis [Unknown]
  - Liver injury [Unknown]
  - Pneumonia [Unknown]
  - Serotonin syndrome [Unknown]
  - Acute kidney injury [Unknown]
